FAERS Safety Report 9484190 (Version 1)
Quarter: 2013Q3

REPORT INFORMATION
  Report Type: Spontaneous
  Country: ES (occurrence: ES)
  Receive Date: 20130828
  Receipt Date: 20130828
  Transmission Date: 20140515
  Serious: Yes (Hospitalization)
  Sender: FDA-Public Use
  Company Number: ES-B.I. PHARMACEUTICALS,INC./RIDGEFIELD-2013-ES-00504ES

PATIENT
  Age: 82 Year
  Sex: Male

DRUGS (6)
  1. MICARDISPLUS [Suspect]
     Route: 048
     Dates: end: 20130528
  2. HYDROCHLOROTHIAZIDE [Suspect]
     Indication: HYPERTENSION
     Dosage: 50 MG
     Route: 048
     Dates: end: 20130528
  3. SIMVASTATINA [Concomitant]
     Indication: HYPERLIPIDAEMIA
     Dosage: 20 MG
     Route: 048
     Dates: end: 20130528
  4. TRIFLUSAL [Concomitant]
     Indication: PROPHYLAXIS
     Dosage: 600 MG
     Route: 048
     Dates: end: 20130528
  5. NIFEDIPINO [Concomitant]
     Dosage: 60 MG
     Route: 048
     Dates: end: 20130528
  6. TAMSULOSINA [Concomitant]
     Dosage: 4 MG
     Route: 048
     Dates: end: 20130528

REACTIONS (3)
  - Hypocalcaemia [Recovered/Resolved]
  - Hyponatraemia [Recovered/Resolved]
  - Drug interaction [Recovered/Resolved]
